FAERS Safety Report 8131744-6 (Version None)
Quarter: 2012Q1

REPORT INFORMATION
  Report Type: 
  Country: None (occurrence: None)
  Receive Date: 20120208
  Receipt Date: 20120127
  Transmission Date: 20120608
  Serious: Yes (Other)
  Sender: FDA-Public Use
  Company Number: 1178283

PATIENT
  Age: 73 Year
  Sex: Female

DRUGS (23)
  1. (PANADEINE /00116401/) [Concomitant]
  2. (PANADOL /00020001/) [Concomitant]
  3. ARAVA [Concomitant]
  4. NIFEDIPINE [Concomitant]
  5. FOLIC ACID [Concomitant]
  6. IRBESARTAN + HYDROCHLOROTHIAZIDE [Concomitant]
  7. (ESOMEPRAZOLE) [Concomitant]
  8. SIMVASTATIN [Concomitant]
  9. LEVOTHYROXINE SODIUM [Concomitant]
  10. PREDNISOLONE [Concomitant]
  11. METOCLOPRAMIDE [Concomitant]
  12. (OSTELIN /00107901/) [Concomitant]
  13. METHOTREXATE [Suspect]
     Indication: PRODUCT USED FOR UNKNOWN INDICATION
     Dosage: 10 MG, 1 WEEK
  14. (FISH OIL) [Concomitant]
  15. PREDNISONE [Concomitant]
  16. ACETAMINOPHEN [Concomitant]
  17. DIAZEPAM [Concomitant]
  18. ORENCIA [Suspect]
     Indication: RHEUMATOID ARTHRITIS
     Dosage: 750 MG, 1 MONTH, INTRAVENOUS DRIP
     Route: 041
     Dates: start: 20100429
  19. FLUTICASONE PROPIONATE/SALMETEROL [Concomitant]
  20. VENTOLIN [Concomitant]
  21. TRAMADOL HCL [Concomitant]
  22. TEMAZEPAM [Concomitant]
  23. AVAPRO [Concomitant]

REACTIONS (6)
  - BRONCHIECTASIS [None]
  - LOWER RESPIRATORY TRACT INFECTION [None]
  - CORONARY ARTERY DISEASE [None]
  - BRONCHITIS [None]
  - OESOPHAGOGASTRIC FUNDOPLASTY [None]
  - SURGERY [None]
